FAERS Safety Report 18985886 (Version 1)
Quarter: 2021Q1

REPORT INFORMATION
  Report Type: Spontaneous
  Country: GB (occurrence: GB)
  Receive Date: 20210309
  Receipt Date: 20210309
  Transmission Date: 20210420
  Serious: Yes (Other)
  Sender: FDA-Public Use
  Company Number: GB-LUPIN PHARMACEUTICALS INC.-2021-02882

PATIENT
  Age: 42 Year
  Sex: Female

DRUGS (16)
  1. CICLOSPORIN [Suspect]
     Active Substance: CYCLOSPORINE
     Indication: CHRONIC CUTANEOUS LUPUS ERYTHEMATOSUS
     Route: 065
  2. MYCOPHENOLATE MOFETIL. [Suspect]
     Active Substance: MYCOPHENOLATE MOFETIL
     Indication: CHRONIC CUTANEOUS LUPUS ERYTHEMATOSUS
     Dosage: UNK
     Route: 065
  3. PREDNISOLONE. [Suspect]
     Active Substance: PREDNISOLONE
     Indication: CHRONIC CUTANEOUS LUPUS ERYTHEMATOSUS
  4. POTASSIUM [Suspect]
     Active Substance: POTASSIUM
     Indication: CHRONIC CUTANEOUS LUPUS ERYTHEMATOSUS
     Dosage: UNK
     Route: 065
  5. GABAPENTIN. [Suspect]
     Active Substance: GABAPENTIN
     Indication: ANALGESIC THERAPY
     Dosage: UNK
     Route: 065
  6. PREDNISOLONE. [Suspect]
     Active Substance: PREDNISOLONE
     Indication: CHRONIC CUTANEOUS LUPUS ERYTHEMATOSUS
     Dosage: UNK
     Route: 065
  7. COLCHICINE. [Suspect]
     Active Substance: COLCHICINE
     Indication: CHRONIC CUTANEOUS LUPUS ERYTHEMATOSUS
     Dosage: UNK
     Route: 065
  8. DAPSONE. [Suspect]
     Active Substance: DAPSONE
     Indication: CHRONIC CUTANEOUS LUPUS ERYTHEMATOSUS
     Dosage: UNK
     Route: 065
  9. CHLOROQUINE. [Suspect]
     Active Substance: CHLOROQUINE
     Indication: CHRONIC CUTANEOUS LUPUS ERYTHEMATOSUS
     Dosage: UNK
     Route: 065
  10. RITUXIMAB. [Suspect]
     Active Substance: RITUXIMAB
     Indication: CHRONIC CUTANEOUS LUPUS ERYTHEMATOSUS
     Dosage: UNK
     Route: 065
  11. DOXYCYCLINE. [Suspect]
     Active Substance: DOXYCYCLINE
     Indication: CHRONIC CUTANEOUS LUPUS ERYTHEMATOSUS
     Dosage: UNK
     Route: 065
  12. AZATHIOPRINE. [Suspect]
     Active Substance: AZATHIOPRINE
     Indication: CHRONIC CUTANEOUS LUPUS ERYTHEMATOSUS
     Dosage: UNK
     Route: 065
  13. NAPROXEN. [Suspect]
     Active Substance: NAPROXEN
     Indication: ANALGESIC THERAPY
  14. CO?DYDRAMOL [Suspect]
     Active Substance: ACETAMINOPHEN\DIHYDROCODEINE
     Indication: ANALGESIC THERAPY
     Dosage: UNK
     Route: 065
  15. HYDROXYCHLOROQUINE [Suspect]
     Active Substance: HYDROXYCHLOROQUINE
     Indication: CHRONIC CUTANEOUS LUPUS ERYTHEMATOSUS
     Dosage: UNK
     Route: 065
  16. NAPROXEN. [Suspect]
     Active Substance: NAPROXEN
     Indication: CHRONIC CUTANEOUS LUPUS ERYTHEMATOSUS
     Dosage: UNK
     Route: 065

REACTIONS (1)
  - Drug ineffective [Unknown]
